FAERS Safety Report 6863872-7 (Version None)
Quarter: 2010Q3

REPORT INFORMATION
  Report Type: 
  Country: None (occurrence: None)
  Receive Date: 20100721
  Receipt Date: 20080312
  Transmission Date: 20110219
  Serious: No
  Sender: FDA-Public Use
  Company Number: US-PFIZER INC-2008023740

PATIENT
  Sex: Male
  Weight: 109.8 kg

DRUGS (3)
  1. CHANTIX [Suspect]
     Indication: SMOKING CESSATION THERAPY
     Dates: start: 20071201
  2. GLUCOPHAGE [Concomitant]
     Indication: DIABETES MELLITUS
  3. LOTENSIN [Concomitant]
     Indication: BLOOD PRESSURE

REACTIONS (2)
  - AMNESIA [None]
  - CONFUSIONAL STATE [None]
